FAERS Safety Report 6326828-9 (Version None)
Quarter: 2009Q3

REPORT INFORMATION
  Report Type: 
  Country: None (occurrence: None)
  Receive Date: 20090818
  Receipt Date: 20090511
  Transmission Date: 20100115
  Serious: No
  Sender: FDA-Public Use
  Company Number: WAES 0905USA01305

PATIENT
  Age: 71 Year
  Sex: Female

DRUGS (7)
  1. JANUVIA [Suspect]
     Indication: DIABETES MELLITUS
     Dosage: 25 MG/PM/PO; 50 MG/AM/PO
     Route: 048
     Dates: start: 20090228, end: 20090331
  2. JANUVIA [Suspect]
     Indication: DIABETES MELLITUS
     Dosage: 25 MG/PM/PO; 50 MG/AM/PO
     Route: 048
     Dates: start: 20090331
  3. GLIMEPIRIDE [Suspect]
     Dosage: 2 MG/BID/PO; 1 MG/AM/PO
     Route: 048
     Dates: end: 20090331
  4. GLIMEPIRIDE [Suspect]
     Dosage: 2 MG/BID/PO; 1 MG/AM/PO
     Route: 048
     Dates: start: 20080501
  5. ALLEGRA [Concomitant]
  6. LEVOXYL [Concomitant]
  7. NEXIUM [Concomitant]

REACTIONS (7)
  - ADVERSE EVENT [None]
  - FATIGUE [None]
  - INAPPROPRIATE SCHEDULE OF DRUG ADMINISTRATION [None]
  - INSOMNIA [None]
  - MALAISE [None]
  - PERIODIC LIMB MOVEMENT DISORDER [None]
  - SOMNOLENCE [None]
